FAERS Safety Report 15637928 (Version 1)
Quarter: 2018Q4

REPORT INFORMATION
  Report Type: Spontaneous
  Country: US (occurrence: US)
  Receive Date: 20181114
  Receipt Date: 20181114
  Transmission Date: 20190205
  Serious: Yes (Hospitalization)
  Sender: FDA-Public Use
  Company Number: None

PATIENT
  Age: 34 Year
  Sex: Male
  Weight: 88.1 kg

DRUGS (20)
  1. CYCLOPHOSPHAMIDE. [Suspect]
     Active Substance: CYCLOPHOSPHAMIDE
     Dates: end: 20181019
  2. MERCAPTOPURINE. [Suspect]
     Active Substance: MERCAPTOPURINE
     Dates: end: 20181019
  3. OLANZAPINE (ZYPREXA) [Concomitant]
  4. TRAMADOL (ULTRAM) [Concomitant]
  5. ACETAMINOPHEN (MAPAP) [Concomitant]
  6. LEVAQUIN [Concomitant]
     Active Substance: LEVOFLOXACIN
  7. ATIVAN [Concomitant]
     Active Substance: LORAZEPAM
  8. CEFEPIME [Concomitant]
     Active Substance: CEFEPIME HYDROCHLORIDE
  9. PRILOSEC [Concomitant]
     Active Substance: OMEPRAZOLE MAGNESIUM
  10. PROCHLRPERAZINE (COMPAZINE) [Concomitant]
  11. DECADRON [Concomitant]
     Active Substance: DEXAMETHASONE
  12. DIFLUCAN [Concomitant]
     Active Substance: FLUCONAZOLE
  13. CYTARABINE. [Suspect]
     Active Substance: CYTARABINE
     Dates: end: 20181019
  14. ALLOPURINOL (ZYLOPRIM) [Concomitant]
  15. POLYETHYLENE GLYCOL 3350-GRX POWDER [Concomitant]
  16. ACYCLOVIR (ZOVIRAX) [Concomitant]
  17. CALCIUM CARBONATE ANTACID [Concomitant]
  18. BACTRIM DS [Concomitant]
     Active Substance: SULFAMETHOXAZOLE\TRIMETHOPRIM
  19. METHOTREXATE. [Suspect]
     Active Substance: METHOTREXATE
     Dates: end: 20181010
  20. ZOFRAN [Concomitant]
     Active Substance: ONDANSETRON HYDROCHLORIDE

REACTIONS (4)
  - Disease recurrence [None]
  - Febrile neutropenia [None]
  - Blast cells present [None]
  - Biopsy bone marrow abnormal [None]

NARRATIVE: CASE EVENT DATE: 20181019
